FAERS Safety Report 17256132 (Version 1)
Quarter: 2020Q1

REPORT INFORMATION
  Report Type: Spontaneous
  Country: US (occurrence: US)
  Receive Date: 20200110
  Receipt Date: 20200110
  Transmission Date: 20200409
  Serious: No
  Sender: FDA-Public Use
  Company Number: US-ASTRAZENECA-2020SE00897

PATIENT
  Sex: Female
  Weight: 71.2 kg

DRUGS (7)
  1. LOSARTAN. [Concomitant]
     Active Substance: LOSARTAN
     Indication: HYPERTENSION
  2. TYLENOL [Concomitant]
     Active Substance: ACETAMINOPHEN
     Indication: INFLUENZA LIKE ILLNESS
  3. XANAX [Concomitant]
     Active Substance: ALPRAZOLAM
     Indication: ANXIETY
  4. SYMBICORT [Suspect]
     Active Substance: BUDESONIDE\FORMOTEROL FUMARATE DIHYDRATE
     Indication: EMPHYSEMA
     Dosage: 160/4.5 MCG TWO PUFFS
     Route: 055
     Dates: start: 201610
  5. AMLODIPINE [Concomitant]
     Active Substance: AMLODIPINE BESYLATE
     Indication: HYPERTENSION
  6. SYMBICORT [Suspect]
     Active Substance: BUDESONIDE\FORMOTEROL FUMARATE DIHYDRATE
     Indication: CHRONIC OBSTRUCTIVE PULMONARY DISEASE
     Dosage: 160/4.5 MCG TWO PUFFS
     Route: 055
     Dates: start: 201610
  7. DALIRESP [Suspect]
     Active Substance: ROFLUMILAST
     Indication: CHRONIC OBSTRUCTIVE PULMONARY DISEASE
     Route: 048

REACTIONS (9)
  - Anxiety [Unknown]
  - Dyspnoea [Recovering/Resolving]
  - Anger [Unknown]
  - Decreased appetite [Unknown]
  - Weight decreased [Unknown]
  - Influenza like illness [Unknown]
  - Hypertension [Unknown]
  - Insomnia [Unknown]
  - Back pain [Unknown]
